FAERS Safety Report 19417501 (Version 1)
Quarter: 2021Q2

REPORT INFORMATION
  Report Type: Spontaneous
  Country: US (occurrence: US)
  Receive Date: 20210615
  Receipt Date: 20210615
  Transmission Date: 20210717
  Serious: Yes (Other)
  Sender: FDA-Public Use
  Company Number: US-MACLEODS PHARMACEUTICALS US LTD-MAC2021031500

PATIENT

DRUGS (1)
  1. ACYCLOVIR. [Suspect]
     Active Substance: ACYCLOVIR
     Indication: DISSEMINATED VARICELLA ZOSTER VIRUS INFECTION
     Dosage: UNK
     Route: 065

REACTIONS (3)
  - Hallucination [Unknown]
  - Nephropathy toxic [Unknown]
  - Neurotoxicity [Unknown]
